FAERS Safety Report 4360837-4 (Version None)
Quarter: 2004Q2

REPORT INFORMATION
  Report Type: 
  Country: None (occurrence: None)
  Receive Date: 20040517
  Receipt Date: 20040510
  Transmission Date: 20050107
  Serious: Yes (Other)
  Sender: FDA-Public Use
  Company Number: THQ2004A00453

PATIENT
  Sex: Male

DRUGS (4)
  1. ACTOS [Suspect]
     Dosage: 30 MG (UNKNOWN) UNKNOWN
  2. HUMULIN-HUMAN NPH INSULIN (RDNA) (INSULIN HUMAN INJECTION, ISOPHANE) [Suspect]
     Indication: DIABETES MELLITUS
     Dosage: 95 UT (IN THE MORNING); 100 UT (IN THE EVENING)
     Route: 058
  3. HUMULIN-HUMAN REGULAR INSULIN (RDNA) (INSULIN HUMAN) [Suspect]
     Indication: DIABETES MELLITUS
     Dosage: 30 UT (IN THE MORNING); 35 UT (IN THE EVENING)
     Route: 058
  4. METFORMIN HCL [Concomitant]

REACTIONS (2)
  - LOSS OF CONSCIOUSNESS [None]
  - SHOCK HYPOGLYCAEMIC [None]
